FAERS Safety Report 7724544-X (Version None)
Quarter: 2011Q3

REPORT INFORMATION
  Report Type: 
  Country: None (occurrence: None)
  Receive Date: 20110901
  Receipt Date: 20110824
  Transmission Date: 20111222
  Serious: Yes (Hospitalization, Other)
  Sender: FDA-Public Use
  Company Number: US-MERCK-1105USA01175

PATIENT
  Age: 73 Year
  Sex: Female
  Weight: 57 kg

DRUGS (8)
  1. FOSAMAX [Suspect]
     Indication: OSTEOPOROSIS
     Route: 048
     Dates: start: 20010301
  2. ACTONEL [Concomitant]
     Indication: OSTEOPOROSIS
     Route: 048
     Dates: start: 20090401, end: 20091001
  3. CALCIUM (UNSPECIFIED) AND VITAMIN D (UNSPECIFIED) [Concomitant]
     Route: 048
     Dates: start: 20010101
  4. ASCORBIC ACID [Concomitant]
     Route: 048
     Dates: start: 20010101
  5. ACTONEL [Concomitant]
     Route: 065
     Dates: start: 20000901
  6. SYNTHROID [Concomitant]
     Indication: HYPOTHYROIDISM
     Route: 048
  7. FOSAMAX [Suspect]
     Indication: OSTEOPENIA
     Route: 048
     Dates: start: 20010301
  8. NEXIUM [Concomitant]
     Indication: GASTROOESOPHAGEAL REFLUX DISEASE
     Route: 048

REACTIONS (25)
  - FEMORAL ARTERY OCCLUSION [None]
  - ARTHRALGIA [None]
  - ARTHROPATHY [None]
  - ARTERIOSCLEROSIS [None]
  - HYPERLIPIDAEMIA [None]
  - LUMBAR RADICULOPATHY [None]
  - MUSCULOSKELETAL PAIN [None]
  - RHINITIS ALLERGIC [None]
  - LUMBAR SPINAL STENOSIS [None]
  - DYSPNOEA [None]
  - CATARACT OPERATION [None]
  - MENISCUS LESION [None]
  - HYPERTENSION [None]
  - CONSTIPATION [None]
  - MUSCLE STRAIN [None]
  - FALL [None]
  - OSTEOARTHRITIS [None]
  - CALCIUM DEFICIENCY [None]
  - POOR QUALITY SLEEP [None]
  - ROTATOR CUFF SYNDROME [None]
  - HIP FRACTURE [None]
  - FEMORAL ARTERIAL STENOSIS [None]
  - PERIPHERAL VASCULAR DISORDER [None]
  - JOINT SWELLING [None]
  - BACK PAIN [None]
